FAERS Safety Report 15946574 (Version 3)
Quarter: 2019Q1

REPORT INFORMATION
  Report Type: Report from Study
  Country: KR (occurrence: KR)
  Receive Date: 20190211
  Receipt Date: 20190218
  Transmission Date: 20190417
  Serious: Yes (Hospitalization, Other)
  Sender: FDA-Public Use
  Company Number: KR-009507513-1807KOR012834

PATIENT
  Age: 78 Year
  Sex: Male
  Weight: 47 kg

DRUGS (4)
  1. PEMBROLIZUMAB. [Suspect]
     Active Substance: PEMBROLIZUMAB
     Indication: MELANOMA RECURRENT
     Dosage: 2 MG/KG, EVERY 3 WEEKS
     Route: 042
     Dates: start: 20180410, end: 20180410
  2. PEMBROLIZUMAB. [Suspect]
     Active Substance: PEMBROLIZUMAB
     Dosage: 2 MG/KG, EVERY 3 WEEKS
     Route: 042
     Dates: start: 20180502, end: 20180502
  3. PEMBROLIZUMAB. [Suspect]
     Active Substance: PEMBROLIZUMAB
     Dosage: 2 MG/KG, EVERY 3 WEEKS
     Route: 042
     Dates: start: 20180523, end: 20180523
  4. PEMBROLIZUMAB. [Suspect]
     Active Substance: PEMBROLIZUMAB
     Dosage: 2 MG/KG, EVERY 3 WEEKS
     Route: 042
     Dates: start: 20180615, end: 20180615

REACTIONS (4)
  - Anaemia [Recovered/Resolved]
  - Inappropriate schedule of product administration [Unknown]
  - Mass excision [Recovered/Resolved]
  - Syncope [Recovered/Resolved]

NARRATIVE: CASE EVENT DATE: 20180410
